FAERS Safety Report 4297565-X (Version None)
Quarter: 2004Q1

REPORT INFORMATION
  Report Type: 
  Country: None (occurrence: None)
  Receive Date: 20040218
  Receipt Date: 20040129
  Transmission Date: 20041129
  Serious: Yes (Life-Threatening)
  Sender: FDA-Public Use
  Company Number: PHBS2004CA01496

PATIENT
  Age: 76 Year
  Sex: Female

DRUGS (2)
  1. GLEEVEC [Suspect]
     Indication: GASTROINTESTINAL STROMAL TUMOUR
     Dosage: 400 MG, QD
     Route: 048
     Dates: start: 20031105
  2. MELATONIN [Suspect]

REACTIONS (6)
  - DRUG INTERACTION [None]
  - DYSPNOEA [None]
  - EYE SWELLING [None]
  - RASH GENERALISED [None]
  - STEVENS-JOHNSON SYNDROME [None]
  - SWELLING FACE [None]
